FAERS Safety Report 17952510 (Version 2)
Quarter: 2020Q2

REPORT INFORMATION
  Report Type: Spontaneous
  Country: BR (occurrence: BR)
  Receive Date: 20200626
  Receipt Date: 20200630
  Transmission Date: 20200714
  Serious: Yes (Other)
  Sender: FDA-Public Use
  Company Number: PHHY2015BR112264

PATIENT
  Sex: Female
  Weight: 56 kg

DRUGS (13)
  1. PROPANOLOL [Concomitant]
     Active Substance: PROPRANOLOL HYDROCHLORIDE
     Indication: MIGRAINE
     Dosage: 2 DF, QD
     Route: 048
  2. PROMENSIL [Concomitant]
     Indication: PRODUCT USED FOR UNKNOWN INDICATION
     Dosage: 1 OT, QD
     Route: 065
  3. PARLODEL [Suspect]
     Active Substance: BROMOCRIPTINE MESYLATE
     Dosage: 2 TABLETS, DAILY
     Route: 048
  4. PARLODEL [Suspect]
     Active Substance: BROMOCRIPTINE MESYLATE
     Dosage: INITIALLY 1 TABLET, DAILY
     Route: 048
  5. PROPANOLOL [Concomitant]
     Active Substance: PROPRANOLOL HYDROCHLORIDE
     Dosage: 10 MG, DAILY
     Route: 065
  6. AMATO [Concomitant]
     Active Substance: TOPIRAMATE
     Indication: MIGRAINE
     Dosage: 2 DF, QD
     Route: 048
  7. PARLODEL [Suspect]
     Active Substance: BROMOCRIPTINE MESYLATE
     Dosage: 1 ? TABLET, DAILY
     Route: 048
  8. SIMVASTATIN. [Suspect]
     Active Substance: SIMVASTATIN
     Indication: PRODUCT USED FOR UNKNOWN INDICATION
     Dosage: 10 MG, QD
     Route: 065
  9. GLIFAGE [Concomitant]
     Active Substance: METFORMIN HYDROCHLORIDE
     Indication: GLUCOSE TOLERANCE IMPAIRED
     Dosage: 1 DF, QD
     Route: 048
  10. EUTHYROX [Concomitant]
     Active Substance: LEVOTHYROXINE SODIUM
     Indication: PRODUCT USED FOR UNKNOWN INDICATION
     Dosage: 1 OT, QD
     Route: 065
  11. TOPIRAMATE. [Suspect]
     Active Substance: TOPIRAMATE
     Indication: MIGRAINE
     Route: 065
  12. PROLIVE [Concomitant]
     Indication: CONSTIPATION
     Dosage: 1 DF, QD
     Route: 048
  13. PARLODEL [Suspect]
     Active Substance: BROMOCRIPTINE MESYLATE
     Indication: PROLACTIN-PRODUCING PITUITARY TUMOUR
     Dosage: 1.5 DF, QD
     Route: 048
     Dates: end: 20150913

REACTIONS (14)
  - Condition aggravated [Recovering/Resolving]
  - Hormone level abnormal [Unknown]
  - Blood cholesterol increased [Unknown]
  - Drug dependence [Unknown]
  - Migraine [Recovering/Resolving]
  - Product availability issue [Unknown]
  - Calcium deficiency [Unknown]
  - Product dose omission [Unknown]
  - Feeling of despair [Unknown]
  - Nausea [Unknown]
  - Blood prolactin decreased [Not Recovered/Not Resolved]
  - Prolactin-producing pituitary tumour [Recovering/Resolving]
  - Blood prolactin increased [Recovered/Resolved]
  - Drug ineffective [Unknown]
